FAERS Safety Report 4458982-8 (Version None)
Quarter: 2004Q3

REPORT INFORMATION
  Report Type: 
  Country: None (occurrence: None)
  Receive Date: 20040922
  Receipt Date: 20040922
  Transmission Date: 20050211
  Serious: Yes (Hospitalization)
  Sender: FDA-Public Use
  Company Number: None

PATIENT
  Age: 58 Year
  Sex: Male

DRUGS (2)
  1. WARFARIN SODIUM [Suspect]
     Indication: ATRIAL FIBRILLATION
     Dosage: 5 MG QD PO
     Route: 048
  2. WARFARIN SODIUM [Suspect]
     Indication: ATRIAL TACHYCARDIA
     Dosage: 5 MG QD PO
     Route: 048

REACTIONS (3)
  - CEREBELLAR HAEMATOMA [None]
  - LETHARGY [None]
  - VENTRICULAR TACHYCARDIA [None]
